FAERS Safety Report 23901614 (Version 1)
Quarter: 2024Q2

REPORT INFORMATION
  Report Type: Spontaneous
  Country: US (occurrence: None)
  Receive Date: 20240526
  Receipt Date: 20240526
  Transmission Date: 20240716
  Serious: Yes (Other)
  Sender: FDA-Public Use
  Company Number: US-ROCHE-3433648

PATIENT
  Age: 30 Year
  Sex: Female
  Weight: 83.9 kg

DRUGS (3)
  1. OCREVUS [Suspect]
     Active Substance: OCRELIZUMAB
     Indication: Relapsing multiple sclerosis
     Route: 042
     Dates: start: 20220930, end: 20221014
  2. OCREVUS [Suspect]
     Active Substance: OCRELIZUMAB
     Dosage: THERAPY DATE: /MAR/2023
     Route: 042
     Dates: start: 20230417, end: 20230417
  3. ERGOCALCIFEROL [Concomitant]
     Active Substance: ERGOCALCIFEROL

REACTIONS (2)
  - Maternal exposure before pregnancy [Unknown]
  - Maternal exposure during pregnancy [Unknown]
